FAERS Safety Report 18722309 (Version 3)
Quarter: 2021Q1

REPORT INFORMATION
  Report Type: Spontaneous
  Country: US (occurrence: US)
  Receive Date: 20210111
  Receipt Date: 20210205
  Transmission Date: 20210419
  Serious: No
  Sender: FDA-Public Use
  Company Number: US-APOTEX-2020AP025059

PATIENT
  Sex: Female
  Weight: 120 kg

DRUGS (5)
  1. NICOTINE. [Suspect]
     Active Substance: NICOTINE
     Indication: SMOKING CESSATION THERAPY
     Dosage: 2 PACKS A DA, SHE ONLY TOOK 1
     Route: 065
  2. CHANTIX [Concomitant]
     Active Substance: VARENICLINE TARTRATE
     Indication: SMOKING CESSATION THERAPY
     Dosage: UNK
     Route: 048
     Dates: start: 201305
  3. CHANTIX [Concomitant]
     Active Substance: VARENICLINE TARTRATE
     Dosage: UNK, BID (IT IS A PACK WITH CERTAIN AMOUNT OF PACK AND GRADUALLY INCREASED)
     Route: 048
     Dates: start: 20181217
  4. NICOTINE. [Suspect]
     Active Substance: NICOTINE
     Indication: SMOKING CESSATION THERAPY
     Dosage: SHE TOOK ONLY 1
     Route: 065
  5. CLEAR NICOTINE PATCH [Suspect]
     Active Substance: NICOTINE
     Indication: SMOKING CESSATION THERAPY
     Dosage: SHE ONLY USED 1 PATCH
     Route: 065

REACTIONS (3)
  - Product taste abnormal [Unknown]
  - Vomiting [Recovered/Resolved]
  - Product adhesion issue [Unknown]
